FAERS Safety Report 6127523-1 (Version None)
Quarter: 2009Q1

REPORT INFORMATION
  Report Type: 
  Country: None (occurrence: None)
  Receive Date: 20090319
  Receipt Date: 20090304
  Transmission Date: 20090719
  Serious: Yes (Hospitalization)
  Sender: FDA-Public Use
  Company Number: DSA_33346_2009

PATIENT
  Sex: Male

DRUGS (7)
  1. MONO-TILDIEM (MONO-TRILDIEM - DILTIAZEM HYDROCHLORIDE) 300 MG (NOT SPE [Suspect]
     Indication: DRUG USE FOR UNKNOWN INDICATION
     Dosage: (300 MG QD ORAL)
     Route: 048
  2. CORDARONE [Suspect]
     Indication: DRUG USE FOR UNKNOWN INDICATION
     Dosage: (200 MG QD ORAL)
     Route: 048
  3. RAMIPRIL [Concomitant]
  4. ESIDRIX [Concomitant]
  5. DIAMICRON [Concomitant]
  6. METFORMIN HCL [Concomitant]
  7. PREVISCAN [Concomitant]

REACTIONS (5)
  - DRUG INTERACTION [None]
  - DYSSTASIA [None]
  - FALL [None]
  - HAEMOGLOBIN DECREASED [None]
  - MEAN CELL VOLUME INCREASED [None]
